FAERS Safety Report 23947872 (Version 2)
Quarter: 2024Q4

REPORT INFORMATION
  Report Type: Spontaneous
  Country: IN (occurrence: IN)
  Receive Date: 20240606
  Receipt Date: 20241008
  Transmission Date: 20250114
  Serious: Yes (Other)
  Sender: SANDOZ
  Company Number: IN-SANDOZ-SDZ2024IN054847

PATIENT
  Sex: Male

DRUGS (2)
  1. MYFORTIC [Suspect]
     Active Substance: MYCOPHENOLATE SODIUM
     Indication: Renal transplant
     Dosage: 180MG-0-360MG
     Route: 048
  2. TACROLIMUS [Suspect]
     Active Substance: TACROLIMUS
     Indication: Renal transplant
     Dosage: 0.5 MG, BID
     Route: 048
     Dates: start: 2012

REACTIONS (7)
  - Kidney transplant rejection [Unknown]
  - Complications of transplanted kidney [Unknown]
  - Amoebic dysentery [Unknown]
  - New onset diabetes after transplantation [Unknown]
  - Hypertension [Unknown]
  - Peripheral swelling [Unknown]
  - Product prescribing error [Unknown]

NARRATIVE: CASE EVENT DATE: 20190101
